FAERS Safety Report 10029746 (Version 1)
Quarter: 2014Q1

REPORT INFORMATION
  Report Type: Spontaneous
  Country: US (occurrence: None)
  Receive Date: 20140321
  Receipt Date: 20140321
  Transmission Date: 20141002
  Serious: Yes (Hospitalization)
  Sender: FDA-Public Use
  Company Number: None

PATIENT
  Age: 53 Year
  Sex: Female
  Weight: 52.1 kg

DRUGS (2)
  1. RIBATAB [Suspect]
     Indication: HEPATITIS C
     Route: 048
     Dates: start: 20140131
  2. SOVALDI [Suspect]
     Indication: HEPATITIS C
     Route: 048
     Dates: start: 20140131

REACTIONS (3)
  - Pleuritic pain [None]
  - Pyrexia [None]
  - Chills [None]
